FAERS Safety Report 10751925 (Version 1)
Quarter: 2015Q1

REPORT INFORMATION
  Report Type: Spontaneous
  Country: US (occurrence: US)
  Receive Date: 20150130
  Receipt Date: 20150130
  Transmission Date: 20150721
  Serious: No
  Sender: FDA-Public Use
  Company Number: US-ENDO PHARMACEUTICALS INC.-FORT20140191

PATIENT
  Age: 60 Year
  Sex: Male

DRUGS (3)
  1. FORTESTA [Suspect]
     Active Substance: TESTOSTERONE
     Route: 061
     Dates: start: 20140910
  2. FORTESTA [Suspect]
     Active Substance: TESTOSTERONE
     Route: 061
     Dates: start: 201408, end: 201409
  3. FORTESTA [Suspect]
     Active Substance: TESTOSTERONE
     Indication: PRODUCT USED FOR UNKNOWN INDICATION
     Route: 061
     Dates: end: 201408

REACTIONS (6)
  - Syncope [Recovered/Resolved]
  - Prescribed overdose [Not Recovered/Not Resolved]
  - Fatigue [Recovering/Resolving]
  - Vomiting [Recovered/Resolved]
  - Breast pain [Unknown]
  - Blood pressure increased [Recovered/Resolved]

NARRATIVE: CASE EVENT DATE: 201408
